FAERS Safety Report 23278231 (Version 2)
Quarter: 2023Q4

REPORT INFORMATION
  Report Type: Report from Study
  Country: MX (occurrence: MX)
  Receive Date: 20231208
  Receipt Date: 20231208
  Transmission Date: 20240109
  Serious: Yes (Death, Other)
  Sender: FDA-Public Use
  Company Number: MX-Merck Healthcare KGaA-2023485476

PATIENT
  Age: 68 Year
  Sex: Female

DRUGS (1)
  1. CETUXIMAB [Suspect]
     Active Substance: CETUXIMAB
     Indication: Colorectal cancer
     Dosage: 400 MG, OTHER (ONE WEEK THEY ADMINISTER IT 2 TIMES AND THE NEXT WEEK 1 TIME AND SO ON)
     Route: 042
     Dates: start: 20230803, end: 20231018

REACTIONS (7)
  - Intestinal obstruction [Fatal]
  - Septic shock [Fatal]
  - Haemoglobin decreased [Not Recovered/Not Resolved]
  - Lung disorder [Unknown]
  - Hepatic function abnormal [Unknown]
  - Weight decreased [Not Recovered/Not Resolved]
  - Off label use [Unknown]

NARRATIVE: CASE EVENT DATE: 20231020
